FAERS Safety Report 16940484 (Version 1)
Quarter: 2019Q4

REPORT INFORMATION
  Report Type: Spontaneous
  Country: US (occurrence: US)
  Receive Date: 20191021
  Receipt Date: 20191021
  Transmission Date: 20200122
  Serious: Yes (Life-Threatening, Hospitalization)
  Sender: FDA-Public Use
  Company Number: US-MYLANLABS-2019M1097743

PATIENT
  Age: 33 Year
  Sex: Male

DRUGS (1)
  1. ALPRAZOLAM. [Suspect]
     Active Substance: ALPRAZOLAM
     Indication: PRODUCT USED FOR UNKNOWN INDICATION
     Dosage: CRUSHED THE PILLS AND INHALED THE MEDICATION.

REACTIONS (9)
  - Unresponsive to stimuli [Recovering/Resolving]
  - Counterfeit product administered [Unknown]
  - Respiratory acidosis [Recovering/Resolving]
  - Pulmonary toxicity [Recovering/Resolving]
  - Overdose [Unknown]
  - Incorrect route of product administration [Unknown]
  - Drug abuse [Unknown]
  - Disorientation [Recovering/Resolving]
  - Bronchiolitis [Unknown]
